FAERS Safety Report 9782548 (Version 1)
Quarter: 2013Q4

REPORT INFORMATION
  Report Type: Spontaneous
  Country: US (occurrence: None)
  Receive Date: 20131224
  Receipt Date: 20131224
  Transmission Date: 20140711
  Serious: Yes (Other)
  Sender: FDA-Public Use
  Company Number: None

PATIENT
  Age: 75 Year
  Sex: Female
  Weight: 54.43 kg

DRUGS (11)
  1. AMLODIPINE BESYLATE [Suspect]
     Indication: HYPERTENSION
     Route: 048
     Dates: start: 20131107
  2. ASPIRIN [Concomitant]
  3. STINGING NETTLE [Concomitant]
  4. FISH OIL [Concomitant]
  5. VITAMIN D [Concomitant]
  6. CLONIDINE HCL [Concomitant]
  7. LISINOPRIL [Concomitant]
  8. L-LYSINE [Concomitant]
  9. CALCIUM CITRATE [Concomitant]
  10. NIACIN [Concomitant]
  11. MULTIVITAMIN + MINERALS [Concomitant]

REACTIONS (18)
  - Nausea [None]
  - Feeling jittery [None]
  - Anxiety [None]
  - Dizziness [None]
  - Headache [None]
  - Flatulence [None]
  - Nervousness [None]
  - Tremor [None]
  - Abdominal discomfort [None]
  - Abdominal pain upper [None]
  - Local swelling [None]
  - Joint swelling [None]
  - Local swelling [None]
  - Erythema [None]
  - Feeling hot [None]
  - Erythema [None]
  - Heart rate increased [None]
  - Nervousness [None]
